FAERS Safety Report 5341991-4 (Version None)
Quarter: 2007Q2

REPORT INFORMATION
  Report Type: 
  Country: None (occurrence: None)
  Receive Date: 20070530
  Receipt Date: 20070530
  Transmission Date: 20071010
  Serious: Yes (Hospitalization)
  Sender: FDA-Public Use
  Company Number: None

PATIENT
  Age: 63 Year
  Sex: Male

DRUGS (2)
  1. MORPHINE [Suspect]
     Indication: PAIN
     Dosage: PRN IV
     Route: 042
     Dates: start: 20070410, end: 20070411
  2. LORAZEPAM [Suspect]
     Dosage: 2MG ONCE PO
     Route: 048

REACTIONS (4)
  - BLOOD PRESSURE INCREASED [None]
  - HEART RATE INCREASED [None]
  - SEDATION [None]
  - UNRESPONSIVE TO STIMULI [None]
